FAERS Safety Report 5338748-7 (Version None)
Quarter: 2007Q2

REPORT INFORMATION
  Report Type: 
  Country: None (occurrence: None)
  Receive Date: 20070322
  Receipt Date: 20060223
  Transmission Date: 20071010
  Serious: Yes (Hospitalization)
  Sender: FDA-Public Use
  Company Number: 200610642BCC

PATIENT
  Age: 56 Year
  Sex: Female
  Weight: 90.7194 kg

DRUGS (12)
  1. ALEVE (CAPLET) [Suspect]
     Indication: BACK PAIN
     Dosage: SEE IMAGE
     Route: 048
     Dates: end: 20051101
  2. ALEVE (CAPLET) [Suspect]
     Indication: HEADACHE
     Dosage: SEE IMAGE
     Route: 048
     Dates: end: 20051101
  3. ALEVE [Suspect]
  4. METFORMIN HCL [Concomitant]
  5. GLIPIZIDE [Concomitant]
  6. AVANDIA [Concomitant]
  7. ZOCOR [Concomitant]
  8. FOLIC ACID [Concomitant]
  9. NORVASC [Concomitant]
  10. BENAZEPRIL HYDROCHLORIDE [Concomitant]
  11. COREG [Concomitant]
  12. FUROSEMIDE [Concomitant]

REACTIONS (5)
  - DIZZINESS [None]
  - FATIGUE [None]
  - HAEMATOCHEZIA [None]
  - INTESTINAL HAEMORRHAGE [None]
  - RASH [None]
